FAERS Safety Report 5897215-2 (Version None)
Quarter: 2008Q3

REPORT INFORMATION
  Report Type: 
  Country: None (occurrence: None)
  Receive Date: 20080923
  Receipt Date: 20080908
  Transmission Date: 20090109
  Serious: Yes (Death)
  Sender: FDA-Public Use
  Company Number: KADN20080339

PATIENT
  Age: 47 Year
  Sex: Male

DRUGS (2)
  1. MORPHINE [Suspect]
     Dates: end: 20050101
  2. DIAZEPAM [Suspect]
     Dates: end: 20050101

REACTIONS (3)
  - ASPIRATION [None]
  - DRUG SCREEN POSITIVE [None]
  - PULMONARY OEDEMA [None]
